FAERS Safety Report 6261727-2 (Version None)
Quarter: 2009Q3

REPORT INFORMATION
  Report Type: 
  Country: None (occurrence: None)
  Receive Date: 20090709
  Receipt Date: 20090313
  Transmission Date: 20100115
  Serious: No
  Sender: FDA-Public Use
  Company Number: US-TYCO HEALTHCARE/MALLINCKRODT-T200900676

PATIENT
  Sex: Female

DRUGS (1)
  1. TRAMADOL HCL [Suspect]

REACTIONS (3)
  - COORDINATION ABNORMAL [None]
  - INSOMNIA [None]
  - LOGORRHOEA [None]
